FAERS Safety Report 5242894-6 (Version None)
Quarter: 2007Q1

REPORT INFORMATION
  Report Type: 
  Country: None (occurrence: None)
  Receive Date: 20070215
  Receipt Date: 20070130
  Transmission Date: 20070707
  Serious: Yes (Hospitalization)
  Sender: FDA-Public Use
  Company Number: A-US2005-10274

PATIENT
  Age: 75 Year
  Sex: Male

DRUGS (8)
  1. TRACLEER [Suspect]
     Indication: PULMONARY HYPERTENSION
     Dosage: SEE IMAGE
     Route: 048
     Dates: start: 20050610, end: 20060525
  2. TRACLEER [Suspect]
     Indication: PULMONARY HYPERTENSION
     Dosage: SEE IMAGE
     Route: 048
     Dates: start: 20060801, end: 20060801
  3. PRAVASTATIN [Suspect]
  4. CLOPIDOGREL BISULFATE [Concomitant]
  5. CARVEDILOL [Concomitant]
  6. HYDROCHLOROTHIAZIDE W/IRBESARTAN (IRBESARTAN, HYDROCHLOROTHIAZIDE) [Concomitant]
  7. SERTRALINE HYDROCHLORIDE [Concomitant]
  8. ESOMEPRAZOLE MAGNESIUM [Concomitant]

REACTIONS (33)
  - BILE DUCT STONE [None]
  - BILIARY TRACT DISORDER [None]
  - BLOOD AMYLASE INCREASED [None]
  - BLOOD GLUCOSE INCREASED [None]
  - BLOOD SODIUM DECREASED [None]
  - BRAIN NATRIURETIC PEPTIDE INCREASED [None]
  - DUODENITIS [None]
  - DYSPNOEA [None]
  - FLUID OVERLOAD [None]
  - GASTRITIS [None]
  - HAEMANGIOMA OF LIVER [None]
  - HAEMATOCHEZIA [None]
  - HAEMATOCRIT DECREASED [None]
  - HAEMATOMA [None]
  - HAEMOBILIA [None]
  - HAEMOGLOBIN DECREASED [None]
  - HEPATIC CYST [None]
  - HEPATIC FUNCTION ABNORMAL [None]
  - HEPATIC INFARCTION [None]
  - HIATUS HERNIA [None]
  - HYPOPERFUSION [None]
  - HYPOTENSION [None]
  - ISCHAEMIC HEPATITIS [None]
  - LIPASE INCREASED [None]
  - NASAL CONGESTION [None]
  - NAUSEA [None]
  - OBSTRUCTION [None]
  - OCCULT BLOOD POSITIVE [None]
  - RENAL CYST [None]
  - SCAN ABDOMEN ABNORMAL [None]
  - SPHINCTER OF ODDI DYSFUNCTION [None]
  - THROMBOSIS [None]
  - VOMITING [None]
